FAERS Safety Report 9002446 (Version 2)
Quarter: 2013Q1

REPORT INFORMATION
  Report Type: Spontaneous
  Country: US (occurrence: US)
  Receive Date: 20130107
  Receipt Date: 20130227
  Transmission Date: 20140127
  Serious: Yes (Hospitalization)
  Sender: FDA-Public Use
  Company Number: US-BAYER-2013-000574

PATIENT
  Age: 26 Year
  Sex: Female

DRUGS (8)
  1. OCELLA [Suspect]
  2. AZITHROMYCIN [Concomitant]
     Dosage: 250 MG, UNK
     Dates: start: 20110920
  3. PROAIR HFA [Concomitant]
     Dosage: 90 ?G, UNK
     Route: 048
     Dates: start: 20110920
  4. ALBUTEROL [Concomitant]
  5. Z-PAK [Concomitant]
  6. YASMIN [Suspect]
  7. YAZ [Suspect]
  8. GIANVI [Suspect]

REACTIONS (5)
  - Pulmonary embolism [None]
  - Pain [None]
  - Injury [None]
  - Emotional distress [None]
  - Pain [None]
